FAERS Safety Report 7271311-X (Version None)
Quarter: 2011Q1

REPORT INFORMATION
  Report Type: 
  Country: None (occurrence: None)
  Receive Date: 20110203
  Receipt Date: 20110131
  Transmission Date: 20110831
  Serious: Yes (Other)
  Sender: FDA-Public Use
  Company Number: DE-BIOGENIDEC-2011BI003407

PATIENT
  Age: 39 Year
  Sex: Female

DRUGS (3)
  1. AVONEX [Suspect]
     Indication: RELAPSING-REMITTING MULTIPLE SCLEROSIS
     Route: 030
     Dates: start: 20080901
  2. ELONTRIL [Concomitant]
     Indication: PRODUCT USED FOR UNKNOWN INDICATION
  3. ZOPICLON [Concomitant]
     Indication: PRODUCT USED FOR UNKNOWN INDICATION
     Dates: start: 20110127

REACTIONS (3)
  - DECREASED APPETITE [None]
  - LYMPHADENOPATHY [None]
  - METASTASES TO LIVER [None]
